FAERS Safety Report 18368424 (Version 1)
Quarter: 2020Q4

REPORT INFORMATION
  Report Type: Report from Study
  Country: None (occurrence: US)
  Receive Date: 20201009
  Receipt Date: 20201009
  Transmission Date: 20210114
  Serious: Yes (Hospitalization)
  Sender: FDA-Public Use
  Company Number: US-ABBVIE-20K-163-3599376-00

PATIENT
  Sex: Female

DRUGS (1)
  1. SKYRIZI [Suspect]
     Active Substance: RISANKIZUMAB-RZAA
     Indication: PSORIASIS
     Dosage: INJECT 150MG (2 SYRINGES) EVERY 12 WEEKS - STARTING ON WEEK 16INJECT?75MG/0.83ML
     Route: 058

REACTIONS (1)
  - Nephrolithiasis [Unknown]
